FAERS Safety Report 14115472 (Version 1)
Quarter: 2017Q4

REPORT INFORMATION
  Report Type: Spontaneous
  Country: None (occurrence: US)
  Receive Date: 20171023
  Receipt Date: 20171023
  Transmission Date: 20180321
  Serious: No
  Sender: FDA-Public Use
  Company Number: US-MEDAC PHARMA, INC.-2031161

PATIENT
  Age: 58 Year
  Sex: Male
  Weight: 72.73 kg

DRUGS (4)
  1. TIZANIDINE HYDROCHLORIDE. [Concomitant]
     Active Substance: TIZANIDINE HYDROCHLORIDE
  2. SULINDAC. [Concomitant]
     Active Substance: SULINDAC
  3. KEVZARA [Concomitant]
     Active Substance: SARILUMAB
  4. RASUVO [Suspect]
     Active Substance: METHOTREXATE SODIUM
     Indication: LYME DISEASE
     Dates: start: 2012

REACTIONS (2)
  - Laboratory test interference [Not Recovered/Not Resolved]
  - Product use in unapproved indication [Unknown]

NARRATIVE: CASE EVENT DATE: 2012
